FAERS Safety Report 14386555 (Version 2)
Quarter: 2018Q3

REPORT INFORMATION
  Report Type: Spontaneous
  Country: US (occurrence: US)
  Receive Date: 20180115
  Receipt Date: 20180716
  Transmission Date: 20181010
  Serious: Yes (Other)
  Sender: FDA-Public Use
  Company Number: US-SA-2017SA150993

PATIENT
  Age: 43 Year
  Sex: Female
  Weight: 72 kg

DRUGS (8)
  1. TAXOTERE [Suspect]
     Active Substance: DOCETAXEL
     Indication: BREAST CANCER FEMALE
     Dosage: 145 MG, Q3W
     Route: 051
     Dates: start: 20080620, end: 20080620
  2. NEOSAR [Concomitant]
     Active Substance: CYCLOPHOSPHAMIDE
  3. VITAMIN B12 [Concomitant]
     Active Substance: CYANOCOBALAMIN
  4. DOXYCYCLINE HYDROCHLORIDE [Concomitant]
     Active Substance: DOXYCYCLINE HYDROCHLORIDE
  5. TAC [Concomitant]
     Active Substance: TRIAMCINOLONE ACETONIDE
  6. VITRITE MULTI?VITAMIN [Concomitant]
  7. ADRIAMYCIN [DOXORUBICIN] [Concomitant]
  8. TAXOTERE [Suspect]
     Active Substance: DOCETAXEL
     Dosage: 160 MG, Q3W
     Route: 051
     Dates: start: 20081016, end: 20081016

REACTIONS (2)
  - Alopecia [Recovering/Resolving]
  - Psychological trauma [Unknown]
